FAERS Safety Report 7267890-9 (Version None)
Quarter: 2011Q1

REPORT INFORMATION
  Report Type: 
  Country: None (occurrence: None)
  Receive Date: 20110201
  Receipt Date: 20110128
  Transmission Date: 20110831
  Serious: Yes (Hospitalization, Other)
  Sender: FDA-Public Use
  Company Number: US-AMGEN-USASP2010011091

PATIENT
  Age: 80 Year
  Sex: Male

DRUGS (9)
  1. LASIX [Concomitant]
     Dosage: 60 MG, QD
  2. LASIX [Concomitant]
     Dosage: 40 MG, UNK
  3. PREVACID [Concomitant]
     Dosage: 15 MG, QD
  4. TYLENOL (CAPLET) [Concomitant]
     Dosage: 650 MG, Q4H
  5. NPLATE [Suspect]
     Indication: IDIOPATHIC THROMBOCYTOPENIC PURPURA
     Dosage: 8 A?G/KG, UNK
     Route: 058
     Dates: start: 20100407, end: 20100901
  6. NPLATE [Suspect]
     Dates: start: 20100407
  7. ALLOPURINOL [Concomitant]
     Dosage: 100 MG, QD
  8. COLCHICINE [Concomitant]
     Dosage: 0.6 MG, QD
  9. NIFEDIPINE [Concomitant]
     Dosage: 60 MG, QD

REACTIONS (5)
  - MYELOPROLIFERATIVE DISORDER [None]
  - THROMBOCYTOPENIA [None]
  - MYELODYSPLASTIC SYNDROME [None]
  - WHITE BLOOD CELL COUNT INCREASED [None]
  - LYMPHADENOPATHY [None]
